FAERS Safety Report 9853890 (Version 3)
Quarter: 2014Q1

REPORT INFORMATION
  Report Type: Spontaneous
  Country: FI (occurrence: FI)
  Receive Date: 20140129
  Receipt Date: 20140307
  Transmission Date: 20141002
  Serious: Yes (Other)
  Sender: FDA-Public Use
  Company Number: FI-009507513-1401FIN013588

PATIENT
  Age: 26 Year
  Sex: Female

DRUGS (1)
  1. NEXPLANON [Suspect]
     Indication: CONTRACEPTION
     Dosage: UNK
     Route: 058
     Dates: start: 20130206, end: 20130924

REACTIONS (9)
  - Extraocular muscle disorder [Recovering/Resolving]
  - Implant site erythema [Recovered/Resolved]
  - Implant site pruritus [Recovered/Resolved]
  - Implant site hypersensitivity [Recovered/Resolved]
  - Headache [Recovering/Resolving]
  - Implant site irritation [Recovered/Resolved]
  - Device difficult to use [Recovered/Resolved]
  - Device dislocation [Recovered/Resolved]
  - Implant site scar [Unknown]
